FAERS Safety Report 6082733-7 (Version None)
Quarter: 2009Q1

REPORT INFORMATION
  Report Type: 
  Country: None (occurrence: None)
  Receive Date: 20090218
  Receipt Date: 20090209
  Transmission Date: 20090719
  Serious: Yes (Other)
  Sender: FDA-Public Use
  Company Number: US-PFIZER INC-2009167150

PATIENT
  Sex: Female
  Weight: 90.7 kg

DRUGS (4)
  1. LIPITOR [Suspect]
     Indication: BLOOD CHOLESTEROL INCREASED
     Dosage: 40 MG, 1X/DAY
     Route: 048
     Dates: start: 20010101, end: 20090202
  2. ANTI-ASTHMATICS [Concomitant]
     Indication: ASTHMA
     Dosage: UNK
  3. INSULIN [Concomitant]
  4. LOVASTATIN [Concomitant]

REACTIONS (7)
  - ABASIA [None]
  - ARTHRITIS [None]
  - ASTHMA [None]
  - BLOOD CHOLESTEROL ABNORMAL [None]
  - DIABETES MELLITUS [None]
  - OEDEMA PERIPHERAL [None]
  - PAIN [None]
